FAERS Safety Report 13415445 (Version 1)
Quarter: 2017Q2

REPORT INFORMATION
  Report Type: Report from Study
  Country: None (occurrence: BR)
  Receive Date: 20170406
  Receipt Date: 20170406
  Transmission Date: 20170830
  Serious: Yes (Disabling, Other)
  Sender: FDA-Public Use
  Company Number: BR-ABBVIE-17K-020-1933135-00

PATIENT
  Age: 36 Year
  Sex: Male
  Weight: 68 kg

DRUGS (3)
  1. DAFORIN [Suspect]
     Active Substance: FLUOXETINE HYDROCHLORIDE
     Indication: ANXIETY
     Route: 048
     Dates: end: 201703
  2. DONAREN [Suspect]
     Active Substance: TRAZODONE HYDROCHLORIDE
     Indication: ANXIETY
     Route: 048
     Dates: end: 201703
  3. HUMIRA [Suspect]
     Active Substance: ADALIMUMAB
     Indication: ANKYLOSING SPONDYLITIS
     Route: 058
     Dates: start: 20160630, end: 201702

REACTIONS (15)
  - Urinary tract infection [Recovered/Resolved]
  - Dizziness [Recovered/Resolved]
  - Feeling hot [Recovered/Resolved]
  - Injection site erythema [Recovered/Resolved]
  - Anxiety [Recovering/Resolving]
  - Malaise [Recovered/Resolved]
  - Injection site reaction [Not Recovered/Not Resolved]
  - Abdominal pain upper [Recovered/Resolved]
  - Hallucination [Recovered/Resolved]
  - Headache [Recovered/Resolved]
  - Tremor [Not Recovered/Not Resolved]
  - Dyskinesia [Recovered/Resolved]
  - Injection site rash [Recovered/Resolved]
  - Pain [Not Recovered/Not Resolved]
  - Gastritis [Recovered/Resolved]

NARRATIVE: CASE EVENT DATE: 201611
